FAERS Safety Report 11024289 (Version 3)
Quarter: 2015Q2

REPORT INFORMATION
  Report Type: Spontaneous
  Country: JP (occurrence: JP)
  Receive Date: 20150414
  Receipt Date: 20150603
  Transmission Date: 20150821
  Serious: Yes (Life-Threatening, Hospitalization, Other)
  Sender: FDA-Public Use
  Company Number: JP-009507513-1504JPN004732

PATIENT
  Age: 75 Year
  Sex: Male
  Weight: 75 kg

DRUGS (14)
  1. JANUVIA [Suspect]
     Active Substance: SITAGLIPTIN PHOSPHATE
     Indication: DIABETES MELLITUS
     Dosage: 50 MG, QD
     Route: 048
     Dates: start: 20150102, end: 20150206
  2. CUBICIN [Suspect]
     Active Substance: DAPTOMYCIN
     Indication: STAPHYLOCOCCAL INFECTION
     Dosage: 350 MG, QD
     Route: 042
     Dates: start: 20150204, end: 20150206
  3. MAGMITT [Concomitant]
     Active Substance: MAGNESIUM OXIDE
     Indication: CONSTIPATION
     Dosage: 330 MG, BID
     Route: 048
     Dates: start: 20141217, end: 20150206
  4. LOXOPROFEN [Suspect]
     Active Substance: LOXOPROFEN
     Indication: PAIN IN EXTREMITY
  5. CYTOTEC [Suspect]
     Active Substance: MISOPROSTOL
     Indication: PEPTIC ULCER
     Dosage: 400 UNK, BID
     Route: 048
     Dates: start: 20150130, end: 20150206
  6. INSULIN [Concomitant]
     Active Substance: INSULIN NOS
     Indication: DIABETES MELLITUS
     Dosage: DAILY DOSAGE UNKNOWN
     Route: 051
  7. ANTIMICROBIAL (UNSPECIFIED) [Concomitant]
     Active Substance: UNSPECIFIED INGREDIENT
     Dosage: UNK
     Dates: start: 20150113, end: 20150124
  8. URSO [Concomitant]
     Active Substance: URSODIOL
     Indication: HEPATIC FUNCTION ABNORMAL
     Dosage: 200 MG, TID
     Route: 048
     Dates: start: 20141015, end: 20150206
  9. LOXOPROFEN [Suspect]
     Active Substance: LOXOPROFEN
     Indication: ARTHRALGIA
     Dosage: 60 MG, BID
     Route: 048
     Dates: start: 20141015, end: 20150206
  10. TEPRENONE [Suspect]
     Active Substance: TEPRENONE
     Indication: PROPHYLAXIS AGAINST GASTROINTESTINAL ULCER
     Dosage: 50 MG, BID
     Route: 048
     Dates: start: 20141015, end: 20150206
  11. LANSOPRAZOLE. [Suspect]
     Active Substance: LANSOPRAZOLE
     Indication: HYPERCHLORHYDRIA
     Dosage: 15 MG, QD
     Route: 048
     Dates: start: 20150102, end: 20150417
  12. RIFAMPIN. [Suspect]
     Active Substance: RIFAMPIN
     Indication: MEDICAL DEVICE SITE JOINT INFECTION
     Dosage: 150 MG, TID
     Route: 048
     Dates: start: 20150129, end: 20150206
  13. BIOFERMIN (BIFIDOBACTERIUM BIFIDUM) [Concomitant]
     Indication: DIARRHOEA
     Dosage: 1 G, TID
     Route: 048
     Dates: start: 20150204, end: 20150206
  14. VANCOMYCIN HYDROCHLORIDE. [Suspect]
     Active Substance: VANCOMYCIN HYDROCHLORIDE
     Indication: STAPHYLOCOCCAL INFECTION
     Dosage: 0.9 G, QD
     Route: 042
     Dates: start: 20150124, end: 20150204

REACTIONS (3)
  - Vomiting [Recovered/Resolved]
  - Immune thrombocytopenic purpura [Not Recovered/Not Resolved]
  - Wound infection staphylococcal [Unknown]

NARRATIVE: CASE EVENT DATE: 20150113
